FAERS Safety Report 14255930 (Version 2)
Quarter: 2018Q3

REPORT INFORMATION
  Report Type: Spontaneous
  Country: US (occurrence: US)
  Receive Date: 20171206
  Receipt Date: 20180822
  Transmission Date: 20181010
  Serious: No
  Sender: FDA-Public Use
  Company Number: US-ASTRAZENECA-2017SF24150

PATIENT
  Age: 27719 Day
  Sex: Female

DRUGS (4)
  1. TUDORZA PRESSAIR [Suspect]
     Active Substance: ACLIDINIUM BROMIDE
     Route: 055
  2. VITAMIN D [Concomitant]
     Active Substance: CHOLECALCIFEROL
     Route: 048
     Dates: start: 20170620
  3. SEREVENT DISCUS [Concomitant]
     Route: 055
     Dates: start: 20170809
  4. VENTOLIN ALBUTEROL [Concomitant]
     Dosage: 90 UG, 2 PUFFS EVERY 4 HOURS AS NEEDED.
     Route: 055
     Dates: start: 20140606

REACTIONS (2)
  - Device malfunction [Unknown]
  - Depressed mood [Unknown]

NARRATIVE: CASE EVENT DATE: 20171204
